FAERS Safety Report 4665125-4 (Version None)
Quarter: 2005Q2

REPORT INFORMATION
  Report Type: 
  Country: None (occurrence: None)
  Receive Date: 20050517
  Receipt Date: 20050504
  Transmission Date: 20051028
  Serious: Yes (Other)
  Sender: FDA-Public Use
  Company Number: 2004085695

PATIENT
  Sex: Female
  Weight: 55 kg

DRUGS (1)
  1. ZELDOX                                     (ZIPRASIDONE) [Suspect]
     Indication: PSYCHOTIC DISORDER
     Dosage: 40 MG (1 IN 1 D), ORAL
     Route: 048
     Dates: start: 20041101, end: 20040101

REACTIONS (3)
  - CORNEAL OEDEMA [None]
  - OEDEMA PERIPHERAL [None]
  - VISUAL DISTURBANCE [None]
